FAERS Safety Report 25147283 (Version 2)
Quarter: 2025Q2

REPORT INFORMATION
  Report Type: Spontaneous
  Country: BE (occurrence: BE)
  Receive Date: 20250401
  Receipt Date: 20250409
  Transmission Date: 20250717
  Serious: Yes (Other)
  Sender: JOHNSON AND JOHNSON
  Company Number: None

PATIENT
  Sex: Male

DRUGS (1)
  1. AKEEGA [Suspect]
     Active Substance: ABIRATERONE ACETATE\NIRAPARIB TOSYLATE MONOHYDRATE
     Indication: Prostate cancer metastatic
     Dates: start: 20241210

REACTIONS (2)
  - Anaemia [Recovered/Resolved]
  - Thrombocytopenia [Recovered/Resolved]

NARRATIVE: CASE EVENT DATE: 20250217
